FAERS Safety Report 7383440-0 (Version None)
Quarter: 2011Q1

REPORT INFORMATION
  Report Type: 
  Country: None (occurrence: None)
  Receive Date: 20110324
  Receipt Date: 20110324
  Transmission Date: 20110831
  Serious: Yes (Disabling)
  Sender: FDA-Public Use
  Company Number: None

PATIENT
  Sex: Male
  Weight: 94.8018 kg

DRUGS (3)
  1. LYRICA [Concomitant]
  2. LORTAB [Concomitant]
  3. CELEBREX [Suspect]
     Indication: INTERVERTEBRAL DISC INJURY
     Dosage: 200MG 1 CAPSULE X2 DAILY PO
     Route: 048
     Dates: start: 20070725, end: 20080110

REACTIONS (15)
  - ABDOMINAL WALL DISORDER [None]
  - GASTROINTESTINAL DISORDER [None]
  - ECONOMIC PROBLEM [None]
  - ABDOMINAL PAIN LOWER [None]
  - FREQUENT BOWEL MOVEMENTS [None]
  - INCREASED UPPER AIRWAY SECRETION [None]
  - GASTROINTESTINAL SOUNDS ABNORMAL [None]
  - RECTAL HAEMORRHAGE [None]
  - INGUINAL HERNIA [None]
  - INJURY [None]
  - DIARRHOEA [None]
  - COUGH [None]
  - POLYP [None]
  - DISCOMFORT [None]
  - GASTROOESOPHAGEAL REFLUX DISEASE [None]
